FAERS Safety Report 4490854-5 (Version None)
Quarter: 2004Q4

REPORT INFORMATION
  Report Type: 
  Country: None (occurrence: None)
  Receive Date: 20041102
  Receipt Date: 20040702
  Transmission Date: 20050328
  Serious: Yes (Other)
  Sender: FDA-Public Use
  Company Number: PHBS2004BE08951

PATIENT
  Age: 76 Year
  Sex: Female

DRUGS (4)
  1. DIOVAN [Suspect]
     Indication: HYPERTENSION
     Dosage: 160 MG/DAY
     Route: 048
     Dates: start: 20020101, end: 20040501
  2. CAPTOPRIL [Concomitant]
  3. COVERSYL [Concomitant]
     Dates: end: 20040501
  4. DYTA-URESE [Concomitant]
     Dates: end: 20040501

REACTIONS (3)
  - BLOOD CREATININE INCREASED [None]
  - HYPERKALAEMIA [None]
  - RENAL ARTERY STENOSIS [None]
